FAERS Safety Report 7764500-9 (Version None)
Quarter: 2011Q3

REPORT INFORMATION
  Report Type: 
  Country: None (occurrence: None)
  Receive Date: 20110921
  Receipt Date: 20110914
  Transmission Date: 20111222
  Serious: Yes (Other)
  Sender: FDA-Public Use
  Company Number: JP-B.I. PHARMACEUTICALS,INC./RIDGEFIELD-2011-BP-22266NB

PATIENT
  Age: 61 Year
  Sex: Male

DRUGS (3)
  1. ASPIRIN [Suspect]
  2. MICARDIS [Suspect]
     Route: 065
  3. PLAVIX [Suspect]

REACTIONS (1)
  - INTERSTITIAL LUNG DISEASE [None]
